FAERS Safety Report 4894438-6 (Version None)
Quarter: 2006Q1

REPORT INFORMATION
  Report Type: 
  Country: None (occurrence: None)
  Receive Date: 20060127
  Receipt Date: 20060116
  Transmission Date: 20060701
  Serious: Yes (Hospitalization)
  Sender: FDA-Public Use
  Company Number: US-ROCHE-432515

PATIENT
  Age: 50 Year
  Sex: Male

DRUGS (1)
  1. FUZEON [Suspect]
     Indication: DRUG USE FOR UNKNOWN INDICATION
     Route: 058
     Dates: start: 20040101

REACTIONS (3)
  - DIABETES MELLITUS [None]
  - SKIN DISORDER [None]
  - SWELLING [None]
